FAERS Safety Report 9395636 (Version 1)
Quarter: 2013Q3

REPORT INFORMATION
  Report Type: Spontaneous
  Country: FR (occurrence: FR)
  Receive Date: 20130711
  Receipt Date: 20130711
  Transmission Date: 20140515
  Serious: Yes (Life-Threatening)
  Sender: FDA-Public Use
  Company Number: FR-TEVA-416989ISR

PATIENT
  Age: 58 Year
  Sex: Male

DRUGS (2)
  1. FUROSEMIDE [Suspect]
     Indication: HYPERTENSION
     Dosage: 6 DOSAGE FORMS DAILY; SCORED TABLET
     Route: 048
     Dates: start: 201305, end: 201306
  2. FUROSEMIDE [Suspect]
     Indication: DIURETIC THERAPY

REACTIONS (11)
  - Generalised oedema [Recovering/Resolving]
  - Dyspnoea [Recovering/Resolving]
  - Fatigue [Recovering/Resolving]
  - Somnolence [Recovering/Resolving]
  - Muscular weakness [Recovering/Resolving]
  - Decreased appetite [Recovering/Resolving]
  - Cyanosis [Recovering/Resolving]
  - Nightmare [Recovering/Resolving]
  - Testicular swelling [Recovering/Resolving]
  - Skin discolouration [Recovering/Resolving]
  - Asthenia [Recovering/Resolving]
